FAERS Safety Report 24458194 (Version 1)
Quarter: 2024Q4

REPORT INFORMATION
  Report Type: Spontaneous
  Country: JP (occurrence: JP)
  Receive Date: 20241018
  Receipt Date: 20241018
  Transmission Date: 20250114
  Serious: Yes (Other)
  Sender: EXELIXIS
  Company Number: JP-TAKEDA-2024TJP011015

PATIENT
  Age: 87 Year
  Sex: Male

DRUGS (3)
  1. CABOMETYX [Suspect]
     Active Substance: CABOZANTINIB S-MALATE
     Indication: Hepatocellular carcinoma
     Dosage: 20 MILLIGRAM
     Route: 048
     Dates: start: 20240515, end: 20240619
  2. CABOMETYX [Suspect]
     Active Substance: CABOZANTINIB S-MALATE
     Dosage: UNK UNK, 3/WEEK
     Route: 048
     Dates: start: 20240620, end: 20240630
  3. CABOMETYX [Suspect]
     Active Substance: CABOZANTINIB S-MALATE
     Dosage: UNK UNK, 3/WEEK
     Route: 048
     Dates: start: 20240710, end: 202409

REACTIONS (3)
  - Dementia [Unknown]
  - Coronavirus infection [Unknown]
  - Malaise [Recovered/Resolved]

NARRATIVE: CASE EVENT DATE: 20240620
